FAERS Safety Report 8328908-5 (Version None)
Quarter: 2012Q2

REPORT INFORMATION
  Report Type: 
  Country: None (occurrence: None)
  Receive Date: 20120502
  Receipt Date: 20100917
  Transmission Date: 20120825
  Serious: No
  Sender: FDA-Public Use
  Company Number: US-TEVA-2010004992

PATIENT
  Age: 80 Year
  Sex: Male

DRUGS (4)
  1. NAMENDA [Concomitant]
     Dates: start: 20100101
  2. IBUPROFEN TABLETS [Concomitant]
  3. ARICEPT [Concomitant]
     Dates: start: 20100101
  4. NUVIGIL [Suspect]
     Indication: SLEEP APNOEA SYNDROME
     Route: 048
     Dates: start: 20100914

REACTIONS (1)
  - BLOOD PRESSURE INCREASED [None]
